FAERS Safety Report 7412967-8 (Version None)
Quarter: 2011Q2

REPORT INFORMATION
  Report Type: 
  Country: None (occurrence: None)
  Receive Date: 20110408
  Receipt Date: 20110408
  Transmission Date: 20111010
  Serious: No
  Sender: FDA-Public Use
  Company Number: None

PATIENT
  Age: 57 Year
  Sex: Female
  Weight: 81.6475 kg

DRUGS (1)
  1. LEVAQUIN [Suspect]
     Indication: KIDNEY INFECTION
     Dosage: 1 TAB DAILY PO. ; 3 PILLS TOTAL
     Route: 048
     Dates: start: 20110326, end: 20110328

REACTIONS (7)
  - TREMOR [None]
  - HYPOAESTHESIA [None]
  - ARTHRALGIA [None]
  - THROAT TIGHTNESS [None]
  - DYSPHONIA [None]
  - ACTIVITIES OF DAILY LIVING IMPAIRED [None]
  - PAIN IN EXTREMITY [None]
